FAERS Safety Report 5411371-1 (Version None)
Quarter: 2007Q3

REPORT INFORMATION
  Report Type: 
  Country: None (occurrence: None)
  Receive Date: 20070810
  Receipt Date: 20070730
  Transmission Date: 20080115
  Serious: Yes (Hospitalization)
  Sender: FDA-Public Use
  Company Number: GB-AMGEN-US158630

PATIENT
  Sex: Female
  Weight: 48 kg

DRUGS (21)
  1. ENBREL [Suspect]
     Indication: RHEUMATOID ARTHRITIS
     Route: 058
     Dates: start: 20050516, end: 20051117
  2. MORPHINE SULFATE [Concomitant]
  3. TEMAZEPAM [Concomitant]
     Dosage: 20MG NIGHTLY
  4. ISONIAZID [Concomitant]
     Indication: ANTIBIOTIC PROPHYLAXIS
     Dosage: 300MG ONCE DAILUY
  5. RAMIPRIL [Concomitant]
     Dosage: 5MG
  6. FOSAMAX [Concomitant]
     Dosage: 70MG WEEKLY
  7. CITALOPRAM HYDROBROMIDE [Concomitant]
     Dosage: 10MG ONCE NIGHTLY
  8. SIMVASTATIN [Concomitant]
     Dosage: 40MG NIGHTLY
  9. BECLOMETHASONE DIPROPIONATE [Concomitant]
     Dosage: TWO TWICE DAILY
  10. MIRTAZAPINE [Concomitant]
     Indication: PAIN
     Dosage: 30MG AT NIGHT
  11. BISOPROLOL FUMARATE [Concomitant]
     Dosage: 7.5 MG DAILY
  12. FRUSEMIDE [Concomitant]
     Dosage: 80MG DAILY
  13. ACETYLSALICYLIC ACID SRT [Concomitant]
     Indication: PAIN
     Dosage: 75MG DAILY
  14. PREDNISOLONE [Concomitant]
     Indication: INFECTION PROPHYLAXIS
     Dosage: 10MG DAILY
  15. FERROUS SULFATE TAB [Concomitant]
     Dosage: 200MG DAILY
  16. PARACETAMOL [Concomitant]
     Dosage: 1 GRAM FOUR TIMES A DAY
  17. ORAMORPH SR [Concomitant]
     Dosage: 10MG/5ML AS NEEDED
  18. FLUOXETINE [Concomitant]
     Indication: PAIN
  19. GABAPENTIN [Concomitant]
     Indication: PAIN
  20. IBUPROFEN [Concomitant]
  21. LANSOPRAZOLE [Concomitant]

REACTIONS (4)
  - CUTANEOUS VASCULITIS [None]
  - DEPRESSION [None]
  - INFECTION [None]
  - SUICIDAL IDEATION [None]
